FAERS Safety Report 10347143 (Version 2)
Quarter: 2021Q2

REPORT INFORMATION
  Report Type: Other
  Country: US (occurrence: US)
  Receive Date: 20140729
  Receipt Date: 20210502
  Transmission Date: 20210716
  Serious: Yes (Other)
  Sender: FDA-Public Use
  Company Number: US-ROCHE-1437937

PATIENT

DRUGS (3)
  1. CAPECITABINE. [Suspect]
     Active Substance: CAPECITABINE
     Indication: HER2 POSITIVE BREAST CANCER
     Route: 065
  2. CIXUTUMUMAB [Suspect]
     Active Substance: CIXUTUMUMAB
     Indication: HER2 POSITIVE BREAST CANCER
     Route: 065
  3. LAPATINIB [Suspect]
     Active Substance: LAPATINIB
     Indication: HER2 POSITIVE BREAST CANCER
     Route: 065

REACTIONS (19)
  - Alanine aminotransferase increased [Unknown]
  - Nausea [Unknown]
  - Mucosal inflammation [Unknown]
  - Decreased appetite [Unknown]
  - Dehydration [Unknown]
  - Exfoliative rash [Unknown]
  - Stomatitis [Unknown]
  - Diarrhoea [Unknown]
  - Thrombosis [Unknown]
  - Aspartate aminotransferase increased [Unknown]
  - Constipation [Unknown]
  - Weight decreased [Unknown]
  - Vomiting [Unknown]
  - Fatigue [Unknown]
  - Lipase increased [Unknown]
  - Hypotension [Unknown]
  - Neutropenia [Unknown]
  - Hypocalcaemia [Unknown]
  - Palmar-plantar erythrodysaesthesia syndrome [Unknown]
